FAERS Safety Report 12161502 (Version 24)
Quarter: 2019Q3

REPORT INFORMATION
  Report Type: Report from Study
  Country: CA (occurrence: CA)
  Receive Date: 20160309
  Receipt Date: 20190723
  Transmission Date: 20191004
  Serious: Yes (Hospitalization, Other)
  Sender: FDA-Public Use
  Company Number: CA-ROCHE-1498769

PATIENT
  Age: 68 Year
  Sex: Female
  Weight: 73 kg

DRUGS (12)
  1. SYNTHROID [Concomitant]
     Active Substance: LEVOTHYROXINE SODIUM
     Indication: OFF LABEL USE
  2. ZITHROMAX [Concomitant]
     Active Substance: AZITHROMYCIN DIHYDRATE
     Indication: OFF LABEL USE
     Dosage: PORPHYLAXIS FOR LUNG INFECTION
     Route: 065
  3. FOSAMAX [Concomitant]
     Active Substance: ALENDRONATE SODIUM
     Indication: OFF LABEL USE
  4. ACETYLSALICYLIC ACID [Concomitant]
     Active Substance: ASPIRIN
     Indication: OFF LABEL USE
  5. FOLIC ACID. [Concomitant]
     Active Substance: FOLIC ACID
     Indication: OFF LABEL USE
  6. PREDNISONE. [Concomitant]
     Active Substance: PREDNISONE
     Indication: OFF LABEL USE
  7. ACTEMRA [Suspect]
     Active Substance: TOCILIZUMAB
     Indication: POLYCHONDRITIS
     Route: 042
     Dates: start: 20140903
  8. ACTEMRA [Suspect]
     Active Substance: TOCILIZUMAB
     Indication: OFF LABEL USE
     Route: 042
     Dates: start: 20180827
  9. VOLTAREN [DICLOFENAC] [Concomitant]
     Active Substance: DICLOFENAC SODIUM
     Indication: OFF LABEL USE
  10. AZATHIOPRINE. [Concomitant]
     Active Substance: AZATHIOPRINE
     Indication: OFF LABEL USE
  11. PULMICORT TURBUHALER [Concomitant]
     Active Substance: BUDESONIDE
     Indication: OFF LABEL USE
  12. PRAVASTATIN. [Concomitant]
     Active Substance: PRAVASTATIN
     Indication: OFF LABEL USE

REACTIONS (29)
  - Paraesthesia [Recovered/Resolved]
  - Genital neoplasm malignant female [Unknown]
  - Arthralgia [Not Recovered/Not Resolved]
  - Chondropathy [Unknown]
  - Candida infection [Recovered/Resolved]
  - Pain in extremity [Not Recovered/Not Resolved]
  - Vomiting [Unknown]
  - Fatigue [Unknown]
  - Nerve compression [Unknown]
  - Weight decreased [Recovered/Resolved]
  - Urinary tract infection [Unknown]
  - Cellulitis [Not Recovered/Not Resolved]
  - Vaginal haemorrhage [Not Recovered/Not Resolved]
  - Bursitis [Not Recovered/Not Resolved]
  - Amnesia [Unknown]
  - Gallbladder disorder [Unknown]
  - Pancreatic cyst [Unknown]
  - Chest pain [Unknown]
  - Nasopharyngitis [Not Recovered/Not Resolved]
  - Product use issue [Unknown]
  - Paraesthesia [Not Recovered/Not Resolved]
  - Rash [Not Recovered/Not Resolved]
  - Confusional state [Unknown]
  - Dyspnoea [Not Recovered/Not Resolved]
  - Cervical cord compression [Not Recovered/Not Resolved]
  - Ear infection [Recovered/Resolved]
  - Herpes zoster [Not Recovered/Not Resolved]
  - Off label use [Unknown]
  - Rash papular [Unknown]

NARRATIVE: CASE EVENT DATE: 201411
